FAERS Safety Report 18076802 (Version 5)
Quarter: 2021Q4

REPORT INFORMATION
  Report Type: Report from Study
  Country: US (occurrence: US)
  Receive Date: 20200727
  Receipt Date: 20211216
  Transmission Date: 20220303
  Serious: Yes (Other)
  Sender: FDA-Public Use
  Company Number: US-SHIRE-US202005029

PATIENT
  Age: 12 Year
  Sex: Male

DRUGS (1)
  1. HUMAN IMMUNOGLOBULIN G [Suspect]
     Active Substance: HUMAN IMMUNOGLOBULIN G
     Indication: Primary immunodeficiency syndrome
     Dosage: 8 GRAM, 1/WEEK
     Route: 065

REACTIONS (16)
  - Myasthenia gravis [Unknown]
  - Pneumonia [Unknown]
  - Ear infection [Unknown]
  - Vascular injury [Unknown]
  - Sinus disorder [Unknown]
  - Infusion site bruising [Unknown]
  - Infusion site pain [Unknown]
  - Fatigue [Unknown]
  - Feeling abnormal [Unknown]
  - Eye disorder [Unknown]
  - Skin papilloma [Unknown]
  - Illness [Unknown]
  - Infusion site mass [Unknown]
  - Infusion site pruritus [Unknown]
  - Inappropriate schedule of product administration [Unknown]
  - Product storage error [Unknown]

NARRATIVE: CASE EVENT DATE: 20200206
